FAERS Safety Report 7933606-3 (Version None)
Quarter: 2011Q4

REPORT INFORMATION
  Report Type: 
  Country: None (occurrence: None)
  Receive Date: 20111122
  Receipt Date: 20111118
  Transmission Date: 20120403
  Serious: Yes (Other)
  Sender: FDA-Public Use
  Company Number: KR-ROCHE-1007783

PATIENT
  Age: 52 Year
  Sex: Female

DRUGS (1)
  1. BONIVA [Suspect]
     Indication: OSTEOPOROSIS
     Dosage: UNKNOWN
     Route: 048

REACTIONS (4)
  - MYALGIA [None]
  - ENTERITIS [None]
  - ABDOMINAL PAIN [None]
  - PYREXIA [None]
